FAERS Safety Report 14936465 (Version 1)
Quarter: 2018Q2

REPORT INFORMATION
  Report Type: Report from Study
  Country: ES (occurrence: ES)
  Receive Date: 20180525
  Receipt Date: 20180525
  Transmission Date: 20180711
  Serious: Yes (Other)
  Sender: FDA-Public Use
  Company Number: ES-TEVA-2018-ES-897157

PATIENT
  Age: 42 Year
  Sex: Female
  Weight: 68.7 kg

DRUGS (10)
  1. VENLAFAXINA (2664A) [Suspect]
     Active Substance: VENLAFAXINE HYDROCHLORIDE
     Indication: PSYCHOTIC DISORDER
     Dosage: 150 MILLIGRAM DAILY;
     Route: 048
     Dates: start: 20160627
  2. RISPERDAL FLAS 3 MG COMPRIMIDOS BUCODISPERSABLES [Interacting]
     Active Substance: RISPERIDONE
     Indication: PSYCHOTIC DISORDER
     Dosage: 1/2-0-1
     Route: 048
     Dates: start: 20160627, end: 20160901
  3. VENLAFAXINA (2664A) [Interacting]
     Active Substance: VENLAFAXINE HYDROCHLORIDE
     Indication: BIPOLAR DISORDER
  4. EUTIROX 75 MICROGRAMOS COMPRIMIDOS [Concomitant]
     Active Substance: LEVOTHYROXINE SODIUM
     Route: 048
  5. QUETIAPINA (1136A) [Interacting]
     Active Substance: QUETIAPINE
     Dosage: 0-0-1
     Route: 048
     Dates: start: 20160626, end: 20160627
  6. QUETIAPINA (1136A) [Interacting]
     Active Substance: QUETIAPINE
     Dosage: 0-0-1
     Route: 048
     Dates: start: 20160913
  7. QUETIAPINA (1136A) [Interacting]
     Active Substance: QUETIAPINE
     Indication: PSYCHOTIC DISORDER
     Dosage: 1-0-1
     Route: 048
     Dates: start: 20160627, end: 20160910
  8. RISPERDAL FLAS 3 MG COMPRIMIDOS BUCODISPERSABLES [Interacting]
     Active Substance: RISPERIDONE
     Dosage: 0-0-1
     Route: 048
     Dates: start: 20160901
  9. QUETIAPINA (1136A) [Interacting]
     Active Substance: QUETIAPINE
     Indication: BIPOLAR DISORDER
     Dosage: 50 MILLIGRAM DAILY; 0-0-1
     Route: 048
     Dates: start: 20160910, end: 20160913
  10. RISPERDAL FLAS 3 MG COMPRIMIDOS BUCODISPERSABLES [Interacting]
     Active Substance: RISPERIDONE
     Indication: BIPOLAR DISORDER
     Dosage: 6 MILLIGRAM DAILY; 1/2-1/2-1
     Route: 048
     Dates: start: 20160626, end: 20160627

REACTIONS (2)
  - Abnormal weight gain [Not Recovered/Not Resolved]
  - Drug interaction [Unknown]

NARRATIVE: CASE EVENT DATE: 201606
